FAERS Safety Report 23996223 (Version 1)
Quarter: 2024Q2

REPORT INFORMATION
  Report Type: Spontaneous
  Country: US (occurrence: None)
  Receive Date: 20240620
  Receipt Date: 20240620
  Transmission Date: 20240716
  Serious: No
  Sender: FDA-Public Use
  Company Number: None

PATIENT
  Sex: Female

DRUGS (4)
  1. CUTAQUIG [Suspect]
     Active Substance: HUMAN IMMUNOGLOBULIN G
     Indication: Immunodeficiency common variable
     Dosage: 2GM EVERY 7 DAYS UNDER THE SKIN
     Route: 058
     Dates: start: 202402
  2. CUTAQUIG [Suspect]
     Active Substance: HUMAN IMMUNOGLOBULIN G
     Indication: Immunodeficiency common variable
     Dosage: 8 GM EVERY 7 DAYS UNDER THE SKIN?
     Route: 058
     Dates: start: 202402
  3. EPINEPHERINE AUTO-INJ [Concomitant]
  4. ENBREL SURECLICK PF [Concomitant]

REACTIONS (7)
  - Pyrexia [None]
  - Headache [None]
  - Chills [None]
  - Influenza like illness [None]
  - Product container seal issue [None]
  - Product dose omission issue [None]
  - Device defective [None]
